FAERS Safety Report 4449977-9 (Version None)
Quarter: 2004Q3

REPORT INFORMATION
  Report Type: 
  Country: None (occurrence: None)
  Receive Date: 20040910
  Receipt Date: 20040607
  Transmission Date: 20050211
  Serious: Yes (Other)
  Sender: FDA-Public Use
  Company Number: S04-USA-03072-01

PATIENT
  Sex: Male

DRUGS (5)
  1. LEXAPRO [Suspect]
     Indication: BIPOLAR DISORDER
     Dosage: 120 MG QD PO
     Route: 048
     Dates: start: 20040507, end: 20040604
  2. LEXAPRO [Suspect]
     Indication: BIPOLAR DISORDER
     Dosage: 60 MG QD PO
     Route: 048
     Dates: start: 20040605
  3. LEXAPRO [Suspect]
     Indication: BIPOLAR DISORDER
     Dosage: 20 MG QD PO
     Route: 048
     Dates: start: 20031101
  4. LEXAPRO [Suspect]
     Indication: BIPOLAR DISORDER
     Dosage: UNK
     Route: 065
     Dates: end: 20040506
  5. LIPITOR [Concomitant]

REACTIONS (4)
  - AGGRESSION [None]
  - AMNESIA [None]
  - PRESCRIBED OVERDOSE [None]
  - SUICIDAL IDEATION [None]
